FAERS Safety Report 7642788-2 (Version None)
Quarter: 2011Q3

REPORT INFORMATION
  Report Type: 
  Country: None (occurrence: None)
  Receive Date: 20110728
  Receipt Date: 20110722
  Transmission Date: 20111222
  Serious: Yes (Hospitalization, Other)
  Sender: FDA-Public Use
  Company Number: US-ABBOTT-11P-163-0841186-00

PATIENT
  Sex: Male
  Weight: 77.18 kg

DRUGS (4)
  1. UNKNOWN PAIN MEDICATION [Concomitant]
     Indication: ARTHRALGIA
     Dosage: PRN
     Route: 048
  2. HUMIRA [Suspect]
     Route: 058
     Dates: start: 20110601
  3. HUMIRA [Suspect]
     Indication: PSORIATIC ARTHROPATHY
     Route: 058
     Dates: start: 20090101, end: 20101120
  4. UNKNOWN NOSE SPRAYS [Concomitant]
     Indication: CHRONIC SINUSITIS
     Dosage: PRN
     Route: 045
     Dates: start: 19900101

REACTIONS (10)
  - ARTHRALGIA [None]
  - INTRACRANIAL HYPOTENSION [None]
  - PROCEDURAL COMPLICATION [None]
  - SINUS OPERATION [None]
  - SURGICAL PROCEDURE REPEATED [None]
  - PSORIATIC ARTHROPATHY [None]
  - MENINGITIS [None]
  - PSORIASIS [None]
  - HEADACHE [None]
  - SURGICAL FAILURE [None]
